FAERS Safety Report 7065492-0 (Version None)
Quarter: 2010Q4

REPORT INFORMATION
  Report Type: 
  Country: None (occurrence: None)
  Receive Date: 20101027
  Receipt Date: 20101022
  Transmission Date: 20110411
  Serious: No
  Sender: FDA-Public Use
  Company Number: US-PFIZER INC-2010135403

PATIENT
  Sex: Female

DRUGS (1)
  1. SUTENT [Suspect]
     Dosage: UNK

REACTIONS (5)
  - DYSGEUSIA [None]
  - FATIGUE [None]
  - NAUSEA [None]
  - ORAL DISCOMFORT [None]
  - ORAL PAIN [None]
